FAERS Safety Report 8017832-3 (Version None)
Quarter: 2012Q1

REPORT INFORMATION
  Report Type: 
  Country: None (occurrence: None)
  Receive Date: 20120103
  Receipt Date: 20111213
  Transmission Date: 20120608
  Serious: No
  Sender: FDA-Public Use
  Company Number: US-PFIZER INC-2011304066

PATIENT
  Sex: Female
  Weight: 67.574 kg

DRUGS (2)
  1. PENICILLIN G PROCAINE [Suspect]
     Dosage: UNK
  2. LASIX [Suspect]
     Dosage: UNK

REACTIONS (1)
  - DRUG HYPERSENSITIVITY [None]
